FAERS Safety Report 4704570-5 (Version None)
Quarter: 2005Q2

REPORT INFORMATION
  Report Type: 
  Country: None (occurrence: None)
  Receive Date: 20050629
  Receipt Date: 20050616
  Transmission Date: 20051028
  Serious: Yes (Life-Threatening)
  Sender: FDA-Public Use
  Company Number: 2005JP001200

PATIENT
  Age: 64 Year
  Sex: Male

DRUGS (9)
  1. FUNGUARD                                (MICAFUNGIN) [Suspect]
     Dosage: 150.00 MG QUID/QD IV DRIP
     Route: 042
     Dates: start: 20050518, end: 20050527
  2. BACTRIM [Suspect]
     Dosage: 9.00 DF ORAL
     Route: 048
     Dates: start: 20050520, end: 20050524
  3. PREDNISOLONE [Concomitant]
  4. FOIPAN     (CAMOSTAT MESILATE) [Concomitant]
  5. SPACAL   (TREPIBUTONE) [Concomitant]
  6. EXCELASE    (ENZYMES NOS) [Concomitant]
  7. GASTROM          (ECABET MONOSODIUM) [Concomitant]
  8. RABEPRAZOLE SODIUM [Concomitant]
  9. ONE-ALPHA (ALFACALCIDOL) [Concomitant]

REACTIONS (1)
  - HYPERKALAEMIA [None]
